FAERS Safety Report 5221638-8 (Version None)
Quarter: 2007Q1

REPORT INFORMATION
  Report Type: 
  Country: None (occurrence: None)
  Receive Date: 20070129
  Receipt Date: 20070116
  Transmission Date: 20070707
  Serious: Yes (Hospitalization, Disabling)
  Sender: FDA-Public Use
  Company Number: PHRM2007FR00562

PATIENT
  Age: 48 Year
  Sex: Female

DRUGS (5)
  1. XELODA [Concomitant]
     Dates: end: 20051001
  2. HERCEPTIN [Concomitant]
  3. INSULIN [Concomitant]
     Indication: DIABETES MELLITUS
     Dates: start: 19980101
  4. ZOMETA [Suspect]
     Dosage: 4 MG, QMO
     Route: 042
     Dates: start: 20021226, end: 20051201
  5. ZOMETA [Suspect]
     Dosage: 4 MG, UNK
     Route: 042
     Dates: start: 20060101, end: 20060326

REACTIONS (3)
  - HYPERBARIC OXYGEN THERAPY [None]
  - OSTEONECROSIS [None]
  - SINUS DISORDER [None]
